FAERS Safety Report 9444716 (Version 1)
Quarter: 2013Q3

REPORT INFORMATION
  Report Type: Report from Study
  Country: JP (occurrence: JP)
  Receive Date: 20130807
  Receipt Date: 20130807
  Transmission Date: 20140515
  Serious: Yes (Hospitalization)
  Sender: FDA-Public Use
  Company Number: JP-ROCHE-1258091

PATIENT
  Age: 0 Day
  Sex: Female
  Weight: 1.4 kg

DRUGS (2)
  1. ACTEMRA [Suspect]
     Indication: RHEUMATOID ARTHRITIS
     Dosage: 300-520MG
     Route: 064
     Dates: start: 20080611, end: 20121114
  2. ACTEMRA [Suspect]
     Indication: RHEUMATOID ARTHRITIS
     Dosage: DOSAGE IS UNCERTAIN.
     Route: 064
     Dates: start: 20130110, end: 20130531

REACTIONS (2)
  - Premature baby [Not Recovered/Not Resolved]
  - Maternal exposure timing unspecified [Unknown]
